FAERS Safety Report 8239387-0 (Version None)
Quarter: 2012Q1

REPORT INFORMATION
  Report Type: 
  Country: None (occurrence: None)
  Receive Date: 20120328
  Receipt Date: 20120313
  Transmission Date: 20120608
  Serious: Yes (Other)
  Sender: FDA-Public Use
  Company Number: FR-BRISTOL-MYERS SQUIBB COMPANY-16453425

PATIENT
  Age: 50 Year
  Sex: Female

DRUGS (2)
  1. PRAVASTATIN [Suspect]
  2. REVIA [Suspect]
     Dates: start: 20120301

REACTIONS (2)
  - COMA [None]
  - SUICIDE ATTEMPT [None]
